FAERS Safety Report 4487056-5 (Version None)
Quarter: 2004Q3

REPORT INFORMATION
  Report Type: 
  Country: None (occurrence: None)
  Receive Date: 20040921
  Receipt Date: 20040330
  Transmission Date: 20050211
  Serious: Yes (Hospitalization)
  Sender: FDA-Public Use
  Company Number: 163-20785-04030786

PATIENT
  Age: 52 Year
  Sex: Female
  Weight: 83 kg

DRUGS (14)
  1. THALOMID [Suspect]
     Indication: MULTIPLE MYELOMA
     Dosage: 100 MG, QHS, ORAL
     Route: 048
     Dates: start: 20040217, end: 20040223
  2. THALOMID [Suspect]
     Indication: MULTIPLE MYELOMA
     Dosage: 100 MG, QHS, ORAL
     Route: 048
     Dates: start: 20040301, end: 20040322
  3. THALOMID [Suspect]
     Indication: MULTIPLE MYELOMA
     Dosage: 100 MG, QHS, ORAL
     Route: 048
     Dates: start: 20040329, end: 20040419
  4. VINCRISTINE [Suspect]
     Indication: MULTIPLE MYELOMA
     Dosage: Q 28 DAY CYCLE
     Dates: start: 20040224, end: 20040227
  5. VINCRISTINE [Suspect]
     Indication: MULTIPLE MYELOMA
     Dosage: Q 28 DAY CYCLE
     Dates: start: 20040323, end: 20040326
  6. ADRIAMYCIN PFS [Suspect]
     Indication: MULTIPLE MYELOMA
     Dosage: Q 28 DAY CYCLE
     Dates: start: 20040224, end: 20040227
  7. ADRIAMYCIN PFS [Suspect]
     Indication: MULTIPLE MYELOMA
     Dosage: Q 28 DAY CYCLE
     Dates: start: 20040323, end: 20040326
  8. DEXAMETHASONE [Suspect]
     Indication: MULTIPLE MYELOMA
     Dosage: Q 28 DAY CYCLE
     Dates: start: 20040224, end: 20040227
  9. DEXAMETHASONE [Suspect]
     Indication: MULTIPLE MYELOMA
     Dosage: Q 28 DAY CYCLE
     Dates: start: 20040323, end: 20040326
  10. COLACE (DOCUSATE SODIUM) [Concomitant]
  11. COMPAZINE [Concomitant]
  12. SENOKOT [Concomitant]
  13. LORTAB [Concomitant]
  14. IBUPROFEN [Concomitant]

REACTIONS (4)
  - CHEST PAIN [None]
  - DYSPNOEA [None]
  - ECHOCARDIOGRAM ABNORMAL [None]
  - SYNCOPE [None]
